FAERS Safety Report 4554546-6 (Version None)
Quarter: 2005Q1

REPORT INFORMATION
  Report Type: 
  Country: None (occurrence: None)
  Receive Date: 20050118
  Receipt Date: 20040309
  Transmission Date: 20050727
  Serious: Yes (Other)
  Sender: FDA-Public Use
  Company Number: US-BRISTOL-MYERS SQUIBB COMPANY-12528824

PATIENT
  Age: 57 Year
  Sex: Female

DRUGS (5)
  1. ESTRACE [Suspect]
     Indication: HORMONE REPLACEMENT THERAPY
     Dosage: SWITCHED TO ESTRATEST ON 27-JUN-2001, RESUMED ON 07-DEC-2001
     Route: 048
     Dates: start: 19860801, end: 20020424
  2. PROVERA [Suspect]
     Indication: HORMONE REPLACEMENT THERAPY
     Dosage: INITIAL DOSE WAS 10MG THE FIRST 10 DAYS OF EACH MONTH.
     Route: 048
     Dates: start: 19860801, end: 20020424
  3. ESTRATEST H.S. [Suspect]
     Indication: HORMONE REPLACEMENT THERAPY
     Dosage: DOSAGE FORM = TABLET
     Route: 048
     Dates: start: 20010627, end: 20011207
  4. ALBUTEROL [Concomitant]
     Indication: ASTHMA
  5. ADVAIR DISKUS 100/50 [Concomitant]
     Indication: ASTHMA

REACTIONS (4)
  - BREAST CANCER [None]
  - BREAST CANCER STAGE III [None]
  - BREAST MICROCALCIFICATION [None]
  - OESTROGEN RECEPTOR ASSAY POSITIVE [None]
